FAERS Safety Report 11551291 (Version 1)
Quarter: 2015Q3

REPORT INFORMATION
  Report Type: Spontaneous
  Country: US (occurrence: US)
  Receive Date: 20150903
  Receipt Date: 20150903
  Transmission Date: 20151125
  Serious: No
  Sender: FDA-Public Use
  Company Number: US-ELI_LILLY_AND_COMPANY-USA0506100969

PATIENT
  Age: 82 Year
  Sex: Female

DRUGS (3)
  1. NOVOLIN 70/30 [Concomitant]
     Active Substance: INSULIN HUMAN
     Indication: DIABETES MELLITUS
     Dosage: UNK, UNKNOWN
     Dates: start: 200503, end: 200505
  2. HUMALOG MIX75/25 [Suspect]
     Active Substance: INSULIN LISPRO
     Indication: DIABETES MELLITUS
     Dosage: 35 U, 2/D
  3. HUMALOG [Suspect]
     Active Substance: INSULIN LISPRO
     Indication: DIABETES MELLITUS
     Dosage: UNK, AS NEEDED
     Dates: start: 1999

REACTIONS (10)
  - Arthralgia [Unknown]
  - Blood glucose increased [Unknown]
  - Weight increased [Not Recovered/Not Resolved]
  - Injection site haemorrhage [Recovered/Resolved]
  - Drug ineffective [Recovered/Resolved]
  - Injection site pain [Recovering/Resolving]
  - Arthritis [Not Recovered/Not Resolved]
  - Eye disorder [Not Recovered/Not Resolved]
  - Visual acuity reduced [Not Recovered/Not Resolved]
  - Retinopathy [Not Recovered/Not Resolved]

NARRATIVE: CASE EVENT DATE: 200411
